FAERS Safety Report 7656414-X (Version None)
Quarter: 2011Q3

REPORT INFORMATION
  Report Type: 
  Country: None (occurrence: None)
  Receive Date: 20110804
  Receipt Date: 20110727
  Transmission Date: 20111222
  Serious: Yes (Hospitalization)
  Sender: FDA-Public Use
  Company Number: FR-GLAXOSMITHKLINE-B0735363A

PATIENT
  Sex: Female

DRUGS (7)
  1. BACTRIM [Suspect]
     Indication: IMMUNOSUPPRESSION
     Dosage: 1UNIT THREE TIMES PER WEEK
     Route: 048
     Dates: start: 20110301, end: 20110704
  2. RAMIPRIL [Concomitant]
     Dosage: 2.5MG PER DAY
     Route: 048
     Dates: start: 20110415
  3. PREDNISONE [Concomitant]
     Indication: RENAL TRANSPLANT
     Route: 048
     Dates: start: 20110301
  4. NEXIUM [Suspect]
     Indication: PRODUCT USED FOR UNKNOWN INDICATION
     Dosage: 20MG PER DAY
     Route: 048
     Dates: start: 20110301, end: 20110708
  5. ATORVASTATIN CALCIUM [Concomitant]
     Dosage: 10MG PER DAY
     Route: 048
     Dates: start: 20110301
  6. VALACYCLOVIR HYDROCHLORIDE [Suspect]
     Indication: IMMUNOSUPPRESSION
     Dosage: 1000MG THREE TIMES PER DAY
     Route: 048
     Dates: start: 20110301, end: 20110707
  7. CERTICAN [Suspect]
     Indication: RENAL TRANSPLANT
     Route: 048
     Dates: start: 20110510

REACTIONS (3)
  - ANAEMIA [None]
  - THROMBOCYTOPENIA [None]
  - NEUTROPENIA [None]
